FAERS Safety Report 24300603 (Version 1)
Quarter: 2024Q3

REPORT INFORMATION
  Report Type: Spontaneous
  Country: IN (occurrence: IN)
  Receive Date: 20240910
  Receipt Date: 20240910
  Transmission Date: 20241017
  Serious: Yes (Other)
  Sender: NOVARTIS
  Company Number: IN-002147023-NVSC2024IN178537

PATIENT
  Age: 80 Year
  Sex: Female

DRUGS (1)
  1. SACUBITRIL\VALSARTAN [Suspect]
     Active Substance: SACUBITRIL\VALSARTAN
     Indication: Product used for unknown indication
     Dosage: UNK, EACH FILM COATED TABLET CONTAINS 24MG SACUBITRIL AND 26MG VALSARTAN AS SODIUM SALT COMPLEX
     Route: 065

REACTIONS (2)
  - Paralysis [Unknown]
  - Medication error [Unknown]
